FAERS Safety Report 20502797 (Version 1)
Quarter: 2022Q1

REPORT INFORMATION
  Report Type: Spontaneous
  Country: IT (occurrence: IT)
  Receive Date: 20220222
  Receipt Date: 20220222
  Transmission Date: 20220423
  Serious: Yes (Other)
  Sender: FDA-Public Use
  Company Number: IT-JNJFOC-20220155231

PATIENT
  Age: 37 Year
  Sex: Female

DRUGS (10)
  1. SPRAVATO [Suspect]
     Active Substance: ESKETAMINE
     Indication: Depression
     Dates: start: 20210917, end: 20220119
  2. SPRAVATO [Suspect]
     Active Substance: ESKETAMINE
     Indication: Major depression
  3. SPRAVATO [Suspect]
     Active Substance: ESKETAMINE
     Indication: Suicidal ideation
  4. CLOZAPINE [Concomitant]
     Active Substance: CLOZAPINE
     Route: 048
     Dates: start: 201902
  5. CLOZAPINE [Concomitant]
     Active Substance: CLOZAPINE
  6. VENLAFAXINE [Concomitant]
     Active Substance: VENLAFAXINE HYDROCHLORIDE
     Route: 048
     Dates: start: 201302
  7. VENLAFAXINE [Concomitant]
     Active Substance: VENLAFAXINE HYDROCHLORIDE
  8. OXCARBAZEPINE [Concomitant]
     Active Substance: OXCARBAZEPINE
     Route: 048
     Dates: start: 202003
  9. OXCARBAZEPINE [Concomitant]
     Active Substance: OXCARBAZEPINE
  10. PANTOPRAZOLE [Concomitant]
     Active Substance: PANTOPRAZOLE
     Route: 048

REACTIONS (2)
  - Nasal polyps [Not Recovered/Not Resolved]
  - Rhinitis atrophic [Not Recovered/Not Resolved]

NARRATIVE: CASE EVENT DATE: 20210101
